FAERS Safety Report 7411182-1 (Version None)
Quarter: 2011Q2

REPORT INFORMATION
  Report Type: 
  Country: None (occurrence: None)
  Receive Date: 20110413
  Receipt Date: 20100407
  Transmission Date: 20111010
  Serious: Yes (Other)
  Sender: FDA-Public Use
  Company Number: US-BRISTOL-MYERS SQUIBB COMPANY-15041023

PATIENT
  Age: 54 Year
  Sex: Female

DRUGS (4)
  1. CAMPTOSAR [Suspect]
     Indication: COLON CANCER
     Dosage: 1DF=500/M2
     Route: 042
     Dates: start: 20100113
  2. BENADRYL [Concomitant]
     Indication: PREMEDICATION
     Dates: start: 20100113
  3. DECADRON [Concomitant]
     Indication: PREMEDICATION
     Dates: start: 20100113
  4. ERBITUX [Suspect]
     Indication: COLORECTAL CANCER METASTATIC
     Dosage: TAKEN ERBITUX 3-6 MONTHS AGO
     Route: 042
     Dates: start: 20100113, end: 20100113

REACTIONS (1)
  - INFUSION RELATED REACTION [None]
